FAERS Safety Report 5396938-1 (Version None)
Quarter: 2007Q3

REPORT INFORMATION
  Report Type: 
  Country: None (occurrence: None)
  Receive Date: 20070725
  Receipt Date: 20070711
  Transmission Date: 20080115
  Serious: Yes (Hospitalization)
  Sender: FDA-Public Use
  Company Number: US-ELI_LILLY_AND_COMPANY-US200707002860

PATIENT
  Age: 48 Year
  Sex: Male

DRUGS (5)
  1. ZYPREXA [Suspect]
     Indication: BIPOLAR DISORDER
     Dosage: 20 MG, UNK
     Dates: start: 20060101
  2. PREVACID [Concomitant]
     Dosage: 40 MG, UNK
  3. PROZAC [Concomitant]
     Dosage: 60 MG, UNK
  4. TRAZODIL [Concomitant]
  5. SUBOXONE [Concomitant]
     Dosage: 5 MG, UNK

REACTIONS (3)
  - ANXIETY [None]
  - DRUG DEPENDENCE [None]
  - DRUG SCREEN POSITIVE [None]
